FAERS Safety Report 8088020-X (Version None)
Quarter: 2012Q1

REPORT INFORMATION
  Report Type: 
  Country: None (occurrence: None)
  Receive Date: 20120128
  Receipt Date: 20110527
  Transmission Date: 20120608
  Serious: No
  Sender: FDA-Public Use
  Company Number: US-ABBOTT-11P-163-0728863-00

PATIENT
  Sex: Female

DRUGS (5)
  1. SYNTHROID [Suspect]
     Indication: BASEDOW'S DISEASE
     Route: 048
     Dates: start: 20110401, end: 20110501
  2. SYNTHROID [Suspect]
     Route: 048
     Dates: start: 20110501
  3. HUMIRA [Suspect]
     Indication: RHEUMATOID ARTHRITIS
     Route: 058
     Dates: end: 20110301
  4. PLAQUENIL [Concomitant]
     Indication: RHEUMATOID ARTHRITIS
  5. SYNTHROID [Suspect]
     Route: 048
     Dates: end: 20110401

REACTIONS (3)
  - BLOOD THYROID STIMULATING HORMONE INCREASED [None]
  - ARTHRALGIA [None]
  - FALL [None]
